FAERS Safety Report 14543640 (Version 3)
Quarter: 2018Q2

REPORT INFORMATION
  Report Type: Spontaneous
  Country: US (occurrence: US)
  Receive Date: 20180216
  Receipt Date: 20180426
  Transmission Date: 20180711
  Serious: No
  Sender: FDA-Public Use
  Company Number: US-VIFOR (INTERNATIONAL) INC.-VIT-2018-01161

PATIENT
  Age: 77 Year
  Sex: Female

DRUGS (13)
  1. FISH OIL [Concomitant]
     Active Substance: FISH OIL
  2. OSACL 500/200 D3 [Concomitant]
  3. ASCORBIC ACID~~PYRIDOXINE HYDROCHLORIDE~~BIOTIN~~FOLIC ACID~~THIAMINE~~CYANOCOBALAMIN~~RETINOL~~PANT [Concomitant]
  4. ASCORBIC ACID. [Concomitant]
     Active Substance: ASCORBIC ACID
  5. VELTASSA [Suspect]
     Active Substance: PATIROMER
     Route: 048
     Dates: start: 20170613
  6. CARVEDILOL. [Concomitant]
     Active Substance: CARVEDILOL
  7. CALCITONIN [Concomitant]
     Active Substance: CALCITONIN
  8. VELTASSA [Suspect]
     Active Substance: PATIROMER
     Indication: HYPERKALAEMIA
     Route: 048
     Dates: start: 20170726
  9. ASCORBIC ACID~~PYRIDOXINE HYDROCHLORIDE~~THIAMINE HYDROCHLORIDE~~CYANOCOBALAMIN~~RIBOFLAVIN~~NICOTIN [Concomitant]
  10. BIFIDOBACTERIUM LACTIS [Concomitant]
     Active Substance: BIFIDOBACTERIUM ANIMALIS LACTIS
  11. KAYEXALATE [Concomitant]
     Active Substance: SODIUM POLYSTYRENE SULFONATE
  12. TELMISARTAN. [Concomitant]
     Active Substance: TELMISARTAN
  13. COLECALCIFEROL [Concomitant]
     Active Substance: CHOLECALCIFEROL

REACTIONS (3)
  - Off label use [Unknown]
  - Hypertension [Unknown]
  - Product colour issue [Unknown]

NARRATIVE: CASE EVENT DATE: 20170613
